FAERS Safety Report 24594703 (Version 1)
Quarter: 2024Q4

REPORT INFORMATION
  Report Type: Spontaneous
  Country: NO (occurrence: NO)
  Receive Date: 20241108
  Receipt Date: 20241108
  Transmission Date: 20250115
  Serious: Yes (Hospitalization)
  Sender: BAUSCH AND LOMB
  Company Number: None

PATIENT
  Age: 1 Year
  Sex: Male
  Weight: 16 kg

DRUGS (2)
  1. LOCOID [Suspect]
     Active Substance: HYDROCORTISONE BUTYRATE
     Indication: Dermatitis atopic
     Dosage: ONCE DURING THE DAY.
     Route: 003
     Dates: start: 20240301
  2. MOMETASONE FUROATE [Suspect]
     Active Substance: MOMETASONE FUROATE
     Indication: Dermatitis atopic
     Dosage: ONCE DURING THE DAY.
     Route: 003

REACTIONS (4)
  - Hair growth abnormal [Not Recovered/Not Resolved]
  - Nail disorder [Not Recovered/Not Resolved]
  - Skin haemorrhage [Not Recovered/Not Resolved]
  - Skin atrophy [Unknown]

NARRATIVE: CASE EVENT DATE: 20240501
